FAERS Safety Report 9797856 (Version 1)
Quarter: 2014Q1

REPORT INFORMATION
  Report Type: Report from Study
  Country: IT (occurrence: IT)
  Receive Date: 20140106
  Receipt Date: 20140106
  Transmission Date: 20141002
  Serious: Yes (Hospitalization)
  Sender: FDA-Public Use
  Company Number: PHHY2013IT153888

PATIENT
  Age: 78 Year
  Sex: Female

DRUGS (13)
  1. COTAREG [Suspect]
     Dosage: UNK UKN, UNK
  2. SINTROM [Suspect]
     Dosage: 1 MG, UNK
     Dates: start: 20131108
  3. SINTROM [Suspect]
     Dosage: 25 MG, UNK
     Dates: start: 20131128
  4. TRASTUZUMAB [Suspect]
     Indication: BREAST CANCER
     Dosage: 600 MG, ONCE IN 3 WEEK
     Route: 058
     Dates: start: 20121115
  5. TRASTUZUMAB [Suspect]
     Dosage: 600 MG , ONCE IN 3 WK
     Route: 058
     Dates: start: 20121207
  6. TRASTUZUMAB [Suspect]
     Dosage: 600 MG, ONCE IN 3 WEEK
     Route: 058
     Dates: start: 20121228
  7. TRASTUZUMAB [Suspect]
     Dosage: 600 MG , 1 IN 3 WKUNK
     Route: 058
     Dates: start: 20131114
  8. LANOXIN [Suspect]
     Dosage: UNK UKN, UNK
  9. DUROGESIC [Suspect]
     Dosage: UNK UKN, UNK
  10. MEPRAL [Suspect]
     Dosage: UNK UKN, UNK
  11. DILATREND [Suspect]
     Dosage: UNK UKN, UNK
  12. DILATREND [Suspect]
     Dosage: 25 MG, UNK
     Dates: start: 20131128
  13. JANUMET [Suspect]
     Dosage: UNK UKN, UNK

REACTIONS (1)
  - Atrial fibrillation [Recovered/Resolved]
